FAERS Safety Report 13703451 (Version 1)
Quarter: 2017Q2

REPORT INFORMATION
  Report Type: Spontaneous
  Country: BR (occurrence: BR)
  Receive Date: 20170629
  Receipt Date: 20170629
  Transmission Date: 20170830
  Serious: Yes (Other)
  Sender: FDA-Public Use
  Company Number: BR-PFIZER INC-2017279279

PATIENT
  Sex: Female

DRUGS (1)
  1. FRONTAL SL [Suspect]
     Active Substance: ALPRAZOLAM
     Dosage: UNK

REACTIONS (4)
  - Infarction [Unknown]
  - Drug use disorder [Unknown]
  - Anxiety [Unknown]
  - Depression [Not Recovered/Not Resolved]
